FAERS Safety Report 14783429 (Version 1)
Quarter: 2018Q2

REPORT INFORMATION
  Report Type: Spontaneous
  Country: US (occurrence: US)
  Receive Date: 20180420
  Receipt Date: 20180420
  Transmission Date: 20180711
  Serious: No
  Sender: FDA-Public Use
  Company Number: US-JNJFOC-20180408720

PATIENT
  Sex: Male

DRUGS (5)
  1. INVEGA SUSTENNA [Suspect]
     Active Substance: PALIPERIDONE PALMITATE
     Indication: SCHIZOPHRENIA
     Route: 030
  2. MIRTAZAPINE. [Concomitant]
     Active Substance: MIRTAZAPINE
     Route: 065
  3. NALTREXONE [Concomitant]
     Active Substance: NALTREXONE
     Route: 065
  4. LISINOPRIL. [Concomitant]
     Active Substance: LISINOPRIL
     Route: 065
  5. OLANZA [Concomitant]
     Route: 065

REACTIONS (4)
  - Hallucination, auditory [Not Recovered/Not Resolved]
  - Off label use [Unknown]
  - Hallucination, visual [Not Recovered/Not Resolved]
  - Inappropriate schedule of drug administration [Unknown]
